FAERS Safety Report 22254747 (Version 4)
Quarter: 2023Q4

REPORT INFORMATION
  Report Type: Spontaneous
  Country: CA (occurrence: CA)
  Receive Date: 20230426
  Receipt Date: 20231204
  Transmission Date: 20240109
  Serious: Yes (Other)
  Sender: FDA-Public Use
  Company Number: CA-PFIZER INC-202300061983

PATIENT
  Age: 51 Year
  Sex: Female

DRUGS (4)
  1. ABRILADA [Suspect]
     Active Substance: ADALIMUMAB-AFZB
     Indication: Crohn^s disease
     Dosage: 160 MG, WEEK 0, 80 MG WEEK 2, THEN 40 MG EVERY 2 WEEKS STARTING WEEK 4
     Route: 058
     Dates: start: 20221108, end: 2023
  2. ABRILADA [Suspect]
     Active Substance: ADALIMUMAB-AFZB
     Dosage: 40 MG
     Route: 058
     Dates: start: 20231121
  3. ABRILADA [Suspect]
     Active Substance: ADALIMUMAB-AFZB
     Dosage: 40 MG, WEEKLY NOT STARTED YET NO FORMULATION YET
     Route: 058
  4. ABRILADA [Suspect]
     Active Substance: ADALIMUMAB-AFZB
     Dosage: 80 MG, WEEKLY PREFILLED PEN NOT STARTED YET
     Route: 058

REACTIONS (7)
  - Tooth disorder [Unknown]
  - Therapeutic product effect incomplete [Unknown]
  - Drug specific antibody present [Unknown]
  - Off label use [Unknown]
  - Peripheral swelling [Recovered/Resolved]
  - Drug level decreased [Unknown]
  - Malaise [Not Recovered/Not Resolved]

NARRATIVE: CASE EVENT DATE: 20230101
